FAERS Safety Report 9633176 (Version 1)
Quarter: 2013Q4

REPORT INFORMATION
  Report Type: Spontaneous
  Country: DE (occurrence: DE)
  Receive Date: 20131020
  Receipt Date: 20131020
  Transmission Date: 20140711
  Serious: Yes (Other)
  Sender: FDA-Public Use
  Company Number: DE-MYLANLABS-2013S1022549

PATIENT
  Age: 48 Year
  Sex: Male
  Weight: 93 kg

DRUGS (1)
  1. LAMOTRIGIN [Suspect]
     Indication: EPILEPSY
     Route: 048

REACTIONS (4)
  - Drug ineffective [Recovered/Resolved]
  - Fall [Recovered/Resolved]
  - Petit mal epilepsy [Recovered/Resolved]
  - Product substitution issue [Recovered/Resolved]
